FAERS Safety Report 7178914-1 (Version None)
Quarter: 2010Q4

REPORT INFORMATION
  Report Type: 
  Country: None (occurrence: None)
  Receive Date: 20101221
  Receipt Date: 20101216
  Transmission Date: 20110411
  Serious: Yes (Death)
  Sender: FDA-Public Use
  Company Number: US-ASTELLAS-2010US005116

PATIENT

DRUGS (10)
  1. PROGRAF [Suspect]
     Indication: RENAL TRANSPLANT
     Dosage: 3 MG, BID
     Route: 065
     Dates: start: 20070710, end: 20100702
  2. CELLCEPT [Concomitant]
     Indication: RENAL TRANSPLANT
     Dosage: 1000 MG, BID
     Route: 065
     Dates: start: 20070710, end: 20100702
  3. LISINOPRIL [Concomitant]
     Indication: PRODUCT USED FOR UNKNOWN INDICATION
     Dosage: 20 MG, UID/QD
     Route: 065
  4. DIFLUCAN [Concomitant]
     Indication: PRODUCT USED FOR UNKNOWN INDICATION
     Dosage: 100 MG, UID/QD
     Route: 065
  5. LANTUS [Concomitant]
     Indication: DIABETES MELLITUS
     Dosage: 30 U, QHS
     Route: 065
  6. PROTONIX [Concomitant]
     Indication: PRODUCT USED FOR UNKNOWN INDICATION
     Dosage: 40 MG, UID/QD
     Route: 065
  7. REGLAN [Concomitant]
     Indication: PRODUCT USED FOR UNKNOWN INDICATION
     Dosage: 10 MG, BID
     Route: 065
  8. PRAVASTATIN [Concomitant]
     Indication: PRODUCT USED FOR UNKNOWN INDICATION
     Dosage: 20 MG, UID/QD
     Route: 065
  9. AMBIEN [Concomitant]
     Indication: PRODUCT USED FOR UNKNOWN INDICATION
     Dosage: UNK
     Route: 065
  10. RESTORIL [Concomitant]
     Indication: PRODUCT USED FOR UNKNOWN INDICATION
     Dosage: 15 MG, UID/QD
     Route: 065

REACTIONS (1)
  - DEATH [None]
